FAERS Safety Report 6752179-4 (Version None)
Quarter: 2010Q2

REPORT INFORMATION
  Report Type: 
  Country: None (occurrence: None)
  Receive Date: 20100602
  Receipt Date: 20100521
  Transmission Date: 20101027
  Serious: Yes (Disabling, Other)
  Sender: FDA-Public Use
  Company Number: US-BAYER-200932727NA

PATIENT
  Age: 59 Year
  Sex: Male

DRUGS (14)
  1. MAGNEVIST [Suspect]
     Indication: DRUG USE FOR UNKNOWN INDICATION
  2. OMNISCAN [Suspect]
     Indication: DRUG USE FOR UNKNOWN INDICATION
  3. OPTIMARK [Suspect]
     Indication: DRUG USE FOR UNKNOWN INDICATION
  4. MULTIHANCE [Suspect]
     Indication: DRUG USE FOR UNKNOWN INDICATION
  5. PROHANCE [Suspect]
     Indication: DRUG USE FOR UNKNOWN INDICATION
  6. SIROLIMUS [Concomitant]
  7. MYCOPHENOLIC [Concomitant]
  8. SYNTHROID [Concomitant]
  9. EPOGEN [Concomitant]
  10. IRON [Concomitant]
  11. LABETALOL HCL [Concomitant]
  12. NEPRINOL [Concomitant]
     Indication: THROMBECTOMY
  13. TREVINOL [Concomitant]
     Indication: PREOPERATIVE CARE
  14. PREDNISONE [Concomitant]

REACTIONS (8)
  - ARTHRALGIA [None]
  - DEFORMITY [None]
  - GENERAL PHYSICAL HEALTH DETERIORATION [None]
  - NEPHROGENIC SYSTEMIC FIBROSIS [None]
  - PAIN [None]
  - PROGRESSIVE MASSIVE FIBROSIS [None]
  - SKIN INDURATION [None]
  - SKIN PLAQUE [None]
